FAERS Safety Report 18239040 (Version 1)
Quarter: 2020Q3

REPORT INFORMATION
  Report Type: Spontaneous
  Country: FR (occurrence: FR)
  Receive Date: 20200907
  Receipt Date: 20200907
  Transmission Date: 20201103
  Serious: Yes (Life-Threatening, Hospitalization)
  Sender: FDA-Public Use
  Company Number: FR-ABBVIE-20K-056-3554356-00

PATIENT
  Age: 71 Year
  Sex: Female
  Weight: 85 kg

DRUGS (6)
  1. SOLUPRED [METHYLPREDNISOLONE SODIUM SUCCINATE] [Suspect]
     Active Substance: METHYLPREDNISOLONE SODIUM SUCCINATE
     Indication: OBLITERATIVE BRONCHIOLITIS
     Dosage: 10 MG, QD
     Route: 048
  2. COUMADINE [Suspect]
     Active Substance: WARFARIN SODIUM
     Indication: CARDIAC VALVE DISEASE
     Dosage: 6 MG, QD
     Route: 048
     Dates: end: 20200319
  3. KALETRA [Suspect]
     Active Substance: LOPINAVIR\RITONAVIR
     Indication: HYPERTENSION
     Route: 048
     Dates: start: 20200317
  4. CORTANCYL [Suspect]
     Active Substance: PREDNISONE
     Indication: OBLITERATIVE BRONCHIOLITIS
     Dosage: 2 MG, QD
     Route: 048
  5. AUGMENTIN [Suspect]
     Active Substance: AMOXICILLIN\CLAVULANATE POTASSIUM
     Indication: CORONAVIRUS INFECTION
     Dosage: UNK
     Route: 048
     Dates: start: 20200313, end: 20200319
  6. ENTRESTO [Suspect]
     Active Substance: SACUBITRIL\VALSARTAN
     Indication: INFLUENZA LIKE ILLNESS
     Dosage: 2 DF, QD
     Route: 048
     Dates: end: 20200319

REACTIONS (10)
  - Condition aggravated [Recovering/Resolving]
  - Cough [Recovering/Resolving]
  - Inflammation [Recovered/Resolved]
  - Coronavirus infection [Recovering/Resolving]
  - Dyspnoea [Recovering/Resolving]
  - Acute kidney injury [Recovered/Resolved]
  - Coronavirus test positive [Not Recovered/Not Resolved]
  - International normalised ratio increased [Recovered/Resolved]
  - Fatigue [Recovering/Resolving]
  - Lung disorder [Recovered/Resolved]

NARRATIVE: CASE EVENT DATE: 202003
